FAERS Safety Report 5401869-4 (Version None)
Quarter: 2007Q3

REPORT INFORMATION
  Report Type: 
  Country: None (occurrence: None)
  Receive Date: 20070731
  Receipt Date: 20070723
  Transmission Date: 20080115
  Serious: Yes (Hospitalization)
  Sender: FDA-Public Use
  Company Number: US-ELI_LILLY_AND_COMPANY-US200707005896

PATIENT
  Age: 67 Year
  Sex: Female
  Weight: 108 kg

DRUGS (3)
  1. BYETTA [Suspect]
     Indication: TYPE 2 DIABETES MELLITUS
     Dosage: 5 UG, 2/D
     Route: 058
     Dates: start: 20060101, end: 20060201
  2. BYETTA [Suspect]
     Dosage: 10 UG, 2/D
     Route: 058
     Dates: start: 20060201, end: 20060501
  3. ACTOS [Concomitant]
     Dosage: 15 MG, DAILY (1/D)
     Dates: start: 20010101

REACTIONS (5)
  - CHOLELITHIASIS [None]
  - DYSPEPSIA [None]
  - FEELING ABNORMAL [None]
  - NAUSEA [None]
  - WEIGHT DECREASED [None]
